FAERS Safety Report 16741997 (Version 1)
Quarter: 2019Q3

REPORT INFORMATION
  Report Type: Spontaneous
  Country: GB (occurrence: GB)
  Receive Date: 20190826
  Receipt Date: 20190826
  Transmission Date: 20191005
  Serious: Yes (Other)
  Sender: FDA-Public Use
  Company Number: GB-TEVA-2019-GB-1096420

PATIENT
  Age: 17 Year
  Sex: Male

DRUGS (10)
  1. DIPHENHYDRAMINE. [Concomitant]
     Active Substance: DIPHENHYDRAMINE
     Dosage: TAKE ONE OR 2 TABLETS AT NIGHT.
     Dates: start: 20190502, end: 20190512
  2. FLUOXETINE [Concomitant]
     Active Substance: FLUOXETINE HYDROCHLORIDE
     Dates: start: 20190606
  3. FUCIBET [Concomitant]
     Dosage: AS ADVISED BY DERMATOLOGIST
     Dates: start: 20190121
  4. HYDROCORTISONE. [Concomitant]
     Active Substance: HYDROCORTISONE
     Dates: start: 20190502, end: 20190509
  5. FLUCLOXACILLIN [Concomitant]
     Active Substance: FLUCLOXACILLIN
     Dates: start: 20190530, end: 20190606
  6. TACROLIMUS. [Concomitant]
     Active Substance: TACROLIMUS
     Dosage: AT NIGHT FOR 2 MONTHS AS DIRECTED BY DERMATOLOGIST
     Dates: start: 20190121
  7. PREDNISOLONE. [Suspect]
     Active Substance: PREDNISOLONE
     Dates: start: 20180215
  8. DERMOL [Concomitant]
     Active Substance: BENZALKONIUM CHLORIDE\CHLORHEXIDINE HYDROCHLORIDE\ISOPROPYL MYRISTATE\PARAFFIN
     Dosage: USE AS DIRECTED AS A SOAP SUBSTITUTE
     Dates: start: 20190530, end: 20190606
  9. CLARITHROMYCIN. [Concomitant]
     Active Substance: CLARITHROMYCIN
     Dates: start: 20190603, end: 20190610
  10. OMEPRAZOLE. [Concomitant]
     Active Substance: OMEPRAZOLE
     Dates: start: 20190530

REACTIONS (1)
  - Gastric perforation [Recovered/Resolved]

NARRATIVE: CASE EVENT DATE: 20180215
